FAERS Safety Report 24608089 (Version 1)
Quarter: 2024Q4

REPORT INFORMATION
  Report Type: Spontaneous
  Country: FR (occurrence: FR)
  Receive Date: 20241112
  Receipt Date: 20241112
  Transmission Date: 20250115
  Serious: Yes (Hospitalization)
  Sender: MYLAN
  Company Number: None

PATIENT
  Age: 25 Year
  Sex: Male
  Weight: 72.8 kg

DRUGS (13)
  1. PREDNISONE [Suspect]
     Active Substance: PREDNISONE
     Indication: Systemic lupus erythematosus
     Dosage: 1 MILLIGRAM/KILOGRAM, QD
     Route: 048
     Dates: start: 20240523
  2. BENLYSTA [Suspect]
     Active Substance: BELIMUMAB
     Indication: Systemic lupus erythematosus
     Dosage: 10 MILLIGRAM/KILOGRAM
     Route: 042
     Dates: start: 20240528, end: 20240528
  3. BENLYSTA [Suspect]
     Active Substance: BELIMUMAB
     Dosage: 10 MILLIGRAM/KILOGRAM
     Route: 042
     Dates: start: 20240611, end: 20240611
  4. BENLYSTA [Suspect]
     Active Substance: BELIMUMAB
     Dosage: 10 MILLIGRAM/KILOGRAM, MONTHLY
     Route: 042
     Dates: start: 20240625, end: 20240919
  5. PLAQUENIL [Suspect]
     Active Substance: HYDROXYCHLOROQUINE SULFATE
     Indication: Systemic lupus erythematosus
     Dosage: 200 MILLIGRAM, BID (12 HOURS)
     Route: 048
     Dates: start: 20240523
  6. CYCLOPHOSPHAMIDE [Concomitant]
     Active Substance: CYCLOPHOSPHAMIDE
     Indication: Systemic lupus erythematosus
     Dosage: 500 MILLIGRAM
     Route: 042
     Dates: start: 20240529, end: 20240529
  7. CYCLOPHOSPHAMIDE [Concomitant]
     Active Substance: CYCLOPHOSPHAMIDE
     Dosage: 500 MILLIGRAM
     Route: 042
     Dates: start: 20240612, end: 20240612
  8. PERINDOPRIL [Concomitant]
     Active Substance: PERINDOPRIL
     Indication: Lupus nephritis
     Dosage: 8 MILLIGRAM, QD
     Route: 048
     Dates: start: 202405
  9. FUROSEMIDE [Concomitant]
     Active Substance: FUROSEMIDE
     Indication: Nephrotic syndrome
     Dosage: 40 MILLIGRAM, QD
     Route: 048
     Dates: start: 202405
  10. HYDROCHLOROTHIAZIDE [Concomitant]
     Active Substance: HYDROCHLOROTHIAZIDE
     Indication: Nephrotic syndrome
     Dosage: 12.5 MILLIGRAM, QD
     Route: 048
     Dates: start: 202405
  11. DAPAGLIFLOZIN [Concomitant]
     Active Substance: DAPAGLIFLOZIN
     Indication: Nephrotic syndrome
     Dosage: 10 MILLIGRAM, QD
     Route: 048
     Dates: start: 202405
  12. POTASSIUM CHLORIDE [Concomitant]
     Active Substance: POTASSIUM CHLORIDE
     Indication: Hypokalaemia
     Dosage: 600 MILLIGRAM, Q8H
     Route: 048
     Dates: start: 202405
  13. CALCIUM\CHOLECALCIFEROL [Concomitant]
     Active Substance: CALCIUM\CHOLECALCIFEROL
     Indication: Vitamin supplementation
     Dosage: 1 DOSAGE FORM, BID (IN SACHET, 12 HOURS)
     Route: 048
     Dates: start: 202405

REACTIONS (1)
  - Psychotic disorder [Not Recovered/Not Resolved]

NARRATIVE: CASE EVENT DATE: 20241001
